FAERS Safety Report 5704580-5 (Version None)
Quarter: 2008Q2

REPORT INFORMATION
  Report Type: 
  Country: None (occurrence: None)
  Receive Date: 20080411
  Receipt Date: 20080411
  Transmission Date: 20081010
  Serious: No
  Sender: FDA-Public Use
  Company Number: None

PATIENT
  Sex: Female
  Weight: 123.832 kg

DRUGS (3)
  1. ORENCIA [Suspect]
     Indication: SPONDYLOARTHROPATHY
     Dosage: 1000 MG EVERY 4 WEEKS IV DRIP
     Route: 041
     Dates: start: 20080103, end: 20080410
  2. IMURAN [Concomitant]
  3. PREDNISONE [Concomitant]

REACTIONS (2)
  - COUGH [None]
  - ERYTHEMA NODOSUM [None]
